FAERS Safety Report 8924997 (Version 1)
Quarter: 2012Q4

REPORT INFORMATION
  Report Type: Spontaneous
  Country: US (occurrence: None)
  Receive Date: 20121126
  Receipt Date: 20121126
  Transmission Date: 20130627
  Serious: Yes (Other)
  Sender: FDA-Public Use
  Company Number: None

PATIENT
  Age: 53 Year
  Sex: Male
  Weight: 83.92 kg

DRUGS (1)
  1. PRAVACHOL [Suspect]
     Indication: HYPERLIPIDEMIA
     Dosage: 20 mg one at bedtime oral
2009 - twice in 2009
     Route: 048
     Dates: start: 2009, end: 2009

REACTIONS (3)
  - Insomnia [None]
  - Nausea [None]
  - Abdominal pain [None]
